FAERS Safety Report 6403732-9 (Version None)
Quarter: 2009Q4

REPORT INFORMATION
  Report Type: 
  Country: None (occurrence: None)
  Receive Date: 20091013
  Receipt Date: 20090925
  Transmission Date: 20100525
  Serious: Yes (Hospitalization)
  Sender: FDA-Public Use
  Company Number: DSA_41801_2009

PATIENT
  Sex: Female

DRUGS (6)
  1. MONO-TILDIEM (MONO-TILDIEM - SLOW RELEASE [Suspect]
     Indication: DRUG USE FOR UNKNOWN INDICATION
     Dosage: (300 MG QD ORAL)
     Route: 048
  2. ASPEGIC / (ASPEGIC-ACETYLSALICYLIC LYSINE-SOLUTION [Suspect]
     Indication: CHEST PAIN
     Dosage: (1 G TID INTRAVENOUS
     Route: 042
     Dates: start: 20061018, end: 20061024
  3. OMEPRAZOLE       (OMEPRAZOLE-TABLET) [Suspect]
     Indication: DRUG USE FOR UNKNOWN INDICATION
     Dosage: (1 DF, 1 DF ORAL)
     Route: 048
  4. ZOLOFT /         (ZOLOFT-SERTRALINE HYDROCHLORIDE-CAPSULE) [Suspect]
     Indication: DRUG USE FOR UNKNOWN INDICATION
     Dosage: (DF ORAL) - CAPSULE
     Route: 048
  5. XANAX [Concomitant]
  6. ACUPAN [Concomitant]

REACTIONS (5)
  - ARTHRALGIA [None]
  - CHEST PAIN [None]
  - CHOLESTASIS [None]
  - HEPATITIS [None]
  - PERICARDITIS [None]
